FAERS Safety Report 10167149 (Version 1)
Quarter: 2014Q2

REPORT INFORMATION
  Report Type: Spontaneous
  Country: US (occurrence: None)
  Receive Date: 20140509
  Receipt Date: 20140509
  Transmission Date: 20141212
  Serious: Yes (Life-Threatening, Disabling)
  Sender: FDA-Public Use
  Company Number: None

PATIENT
  Age: 57 Year
  Sex: 0
  Weight: 80.74 kg

DRUGS (1)
  1. LATUDA [Suspect]
     Indication: SCHIZOPHRENIA
     Route: 048
     Dates: start: 20130501

REACTIONS (7)
  - Emotional disorder [None]
  - Balance disorder [None]
  - Apathy [None]
  - Cerebrovascular accident [None]
  - Dizziness [None]
  - Gait disturbance [None]
  - Fall [None]
